FAERS Safety Report 6249668-8 (Version None)
Quarter: 2009Q2

REPORT INFORMATION
  Report Type: 
  Country: None (occurrence: None)
  Receive Date: 20090625
  Receipt Date: 20090623
  Transmission Date: 20091009
  Serious: Yes (Congenital Anomaly)
  Sender: FDA-Public Use
  Company Number: S07-FIN-01390-02

PATIENT
  Sex: Male
  Weight: 3.085 kg

DRUGS (8)
  1. ESCITALOPRAM [Suspect]
     Indication: DEPRESSION
     Dosage: 10 MG (10 MG, ONCE A DAY), TRANSPLACENTAL
     Route: 064
  2. XENICAL (ORLISTAT) (ORLISTAT) [Concomitant]
  3. SELEXID (PIVMECILLINAM HYDROCHLORIDE) (PIVMECILLINAM HYDROCHLORIDE) [Concomitant]
  4. ANTEPSIN (SUCRALFATE) (SUCRALFATE) [Concomitant]
  5. AGIOCUR (ISPAGHULA) (ISPAGHULA) [Concomitant]
  6. LAXOBERON (SODIUM PICOSULFATE) (SODIUM PICOSULFATE) [Concomitant]
  7. LANZOPRATSOL (LANSOPRAZOLE) (LANSOPRAZOLE) [Concomitant]
  8. DETRUSITOL (TOLTERODINE L-TARTRATE) (TOLTERODINE L-TARTRATE) [Concomitant]

REACTIONS (4)
  - CAESAREAN SECTION [None]
  - CONGENITAL ANOMALY [None]
  - DYSMORPHISM [None]
  - MATERNAL DRUGS AFFECTING FOETUS [None]
